FAERS Safety Report 9485891 (Version 3)
Quarter: 2013Q4

REPORT INFORMATION
  Report Type: Report from Study
  Country: NZ (occurrence: NZ)
  Receive Date: 20130829
  Receipt Date: 20131028
  Transmission Date: 20140711
  Serious: Yes (Hospitalization, Other)
  Sender: FDA-Public Use
  Company Number: PHHY2013NZ093193

PATIENT
  Sex: Female
  Weight: 87.1 kg

DRUGS (2)
  1. CLOZARIL [Suspect]
     Dosage: UNK UKN, UNK
     Dates: start: 20110822
  2. CLOZARIL [Suspect]
     Dosage: 300 MG

REACTIONS (7)
  - Mental impairment [Unknown]
  - Malaise [Unknown]
  - Diabetes mellitus inadequate control [Unknown]
  - Blood glucose increased [Unknown]
  - Hallucination, auditory [Unknown]
  - Insomnia [Unknown]
  - Visual acuity reduced [Unknown]
